FAERS Safety Report 5155082-9 (Version None)
Quarter: 2006Q4

REPORT INFORMATION
  Report Type: 
  Country: None (occurrence: None)
  Receive Date: 20061121
  Receipt Date: 20061016
  Transmission Date: 20070319
  Serious: Yes (Hospitalization)
  Sender: FDA-Public Use
  Company Number: JP-GLAXOSMITHKLINE-B0442568A

PATIENT
  Age: 61 Year
  Sex: Female

DRUGS (6)
  1. PAXIL [Suspect]
     Indication: DEPRESSION
     Dosage: 10MG SEE DOSAGE TEXT
     Route: 048
     Dates: start: 20060818
  2. EVAMYL [Concomitant]
     Indication: INSOMNIA
     Route: 048
  3. MYSLEE [Concomitant]
     Indication: INSOMNIA
     Route: 048
  4. MAGLAX [Concomitant]
     Indication: CONSTIPATION
     Route: 048
  5. MADOPAR [Concomitant]
     Indication: DYSKINESIA
     Route: 048
  6. SYMMETREL [Concomitant]
     Indication: DYSKINESIA
     Route: 048

REACTIONS (6)
  - AFFECT LABILITY [None]
  - CONFUSIONAL STATE [None]
  - DELUSION [None]
  - EPILEPSY [None]
  - HALLUCINATION [None]
  - LOGORRHOEA [None]
